FAERS Safety Report 7729498-8 (Version None)
Quarter: 2011Q3

REPORT INFORMATION
  Report Type: 
  Country: None (occurrence: None)
  Receive Date: 20110831
  Receipt Date: 20110831
  Transmission Date: 20111222
  Serious: Yes (Hospitalization)
  Sender: FDA-Public Use
  Company Number: None

PATIENT
  Age: 59 Year
  Sex: Male
  Weight: 127.3 kg

DRUGS (1)
  1. NITROGLYCERIN [Suspect]
     Indication: CHEST PAIN
     Dosage: 1/2 UNITS ONCE TOP
     Route: 061
     Dates: start: 20110710, end: 20110710

REACTIONS (2)
  - CHEST PAIN [None]
  - HYPOTENSION [None]
